FAERS Safety Report 19254533 (Version 6)
Quarter: 2022Q3

REPORT INFORMATION
  Report Type: Spontaneous
  Country: AT (occurrence: AT)
  Receive Date: 20210513
  Receipt Date: 20220912
  Transmission Date: 20221027
  Serious: Yes (Hospitalization, Other)
  Sender: FDA-Public Use
  Company Number: AT-AMGEN-AUTSP2021072068

PATIENT
  Age: 72 Year
  Sex: Female
  Weight: 53 kg

DRUGS (32)
  1. XGEVA [Suspect]
     Active Substance: DENOSUMAB
     Indication: HER2 positive breast cancer
     Dosage: 120 MILLIGRAM, Q4WK
     Route: 058
     Dates: start: 20161121, end: 20210126
  2. XGEVA [Suspect]
     Active Substance: DENOSUMAB
     Indication: Hypercalcaemia
     Dosage: 120 MILLIGRAM
     Route: 058
     Dates: start: 202109
  3. TRASTUZUMAB [Suspect]
     Active Substance: TRASTUZUMAB
     Indication: HER2 positive breast cancer
     Dosage: 354 MILLIGRAM, Q3WK
     Route: 041
     Dates: start: 20160629, end: 20180621
  4. TRASTUZUMAB [Suspect]
     Active Substance: TRASTUZUMAB
     Dosage: 372 MILLIGRAM, Q4WK
     Route: 041
     Dates: start: 20180719, end: 20200227
  5. TRASTUZUMAB [Suspect]
     Active Substance: TRASTUZUMAB
     Dosage: 372 MILLIGRAM, Q3WK
     Route: 041
     Dates: start: 20200227, end: 20200320
  6. RIBOCICLIB [Suspect]
     Active Substance: RIBOCICLIB
     Indication: HER2 positive breast cancer
     Dosage: 600 MILLIGRAM
     Route: 048
     Dates: start: 20200716, end: 20200814
  7. RIBOCICLIB [Suspect]
     Active Substance: RIBOCICLIB
     Dosage: 400 MILLIGRAM
     Route: 048
     Dates: start: 20200824
  8. RIBOCICLIB [Suspect]
     Active Substance: RIBOCICLIB
     Dosage: 400 MILLIGRAM
     Route: 048
     Dates: start: 20201024
  9. PERTUZUMAB [Suspect]
     Active Substance: PERTUZUMAB
     Indication: Breast cancer metastatic
     Dosage: 420 MILLIGRAM, Q3WK
     Route: 042
     Dates: start: 20160629, end: 20180621
  10. PERTUZUMAB [Suspect]
     Active Substance: PERTUZUMAB
     Indication: Breast cancer
     Dosage: 420 MILLIGRAM, Q4WK
     Route: 042
     Dates: start: 20180719, end: 20200227
  11. PERTUZUMAB [Suspect]
     Active Substance: PERTUZUMAB
     Indication: HER2 positive breast cancer
     Dosage: 420 MILLIGRAM, Q3WK
     Route: 042
     Dates: start: 20200227
  12. FULVESTRANT [Suspect]
     Active Substance: FULVESTRANT
     Indication: HER2 positive breast cancer
     Dosage: 500 MILLIGRAM, Q4WK
     Route: 058
     Dates: start: 20200716
  13. FULVESTRANT [Suspect]
     Active Substance: FULVESTRANT
     Dosage: 500 MILLIGRAM, Q4WK
     Route: 058
     Dates: start: 20200716
  14. PALBOCICLIB [Suspect]
     Active Substance: PALBOCICLIB
     Indication: HER2 positive breast cancer
     Dosage: 100 MILLIGRAM, Q4WK
     Route: 048
     Dates: start: 202011, end: 202012
  15. PALBOCICLIB [Suspect]
     Active Substance: PALBOCICLIB
     Dosage: 75 MILLIGRAM, Q4WK
     Route: 048
     Dates: start: 202012, end: 202110
  16. DOCETAXEL [Suspect]
     Active Substance: DOCETAXEL
     Indication: HER2 positive breast cancer
     Dosage: 75 MILLIGRAM/SQ. METER, Q3WK
     Route: 042
     Dates: start: 20160629, end: 20161013
  17. LETROZOLE [Suspect]
     Active Substance: LETROZOLE
     Indication: HER2 positive breast cancer
     Dosage: 2.5 MILLIGRAM, QD
     Route: 048
     Dates: start: 20161021, end: 20200629
  18. BETAISODONA [Concomitant]
     Active Substance: POVIDONE-IODINE
     Indication: Paronychia
     Dosage: UNK
     Route: 061
     Dates: start: 20201111
  19. DIPRODERM [BETAMETHASONE DIPROPIONATE] [Concomitant]
     Indication: Rash
     Dosage: UNK, BID
     Route: 061
     Dates: start: 20180621
  20. LISINOPRIL [Concomitant]
     Active Substance: LISINOPRIL
     Dosage: 20 MILLIGRAM
     Route: 048
     Dates: start: 20170115, end: 202109
  21. EUTHYROX [Concomitant]
     Active Substance: LEVOTHYROXINE SODIUM
     Dosage: 100 MICROGRAM, QD
     Route: 048
     Dates: start: 20210222
  22. EUTHYROX [Concomitant]
     Active Substance: LEVOTHYROXINE SODIUM
     Dosage: 75 MICROGRAM, QD
     Route: 048
     Dates: start: 20210223
  23. ATORVASTATIN [Concomitant]
     Active Substance: ATORVASTATIN
     Indication: Hypercholesterolaemia
     Dosage: 20 MILLIGRAM
     Route: 048
     Dates: start: 201701, end: 201701
  24. METHYLPREDNISOLONE ACEPONATE [Concomitant]
     Active Substance: METHYLPREDNISOLONE ACEPONATE
     Indication: Palmar-plantar erythrodysaesthesia syndrome
     Dosage: UNK
     Route: 061
     Dates: start: 20201111
  25. NEBIVOLOL HYDROCHLORIDE [Concomitant]
     Active Substance: NEBIVOLOL HYDROCHLORIDE
     Dosage: UNK
     Route: 048
     Dates: start: 20170115
  26. ASPIRIN [Concomitant]
     Active Substance: ASPIRIN
     Dosage: UNK
     Route: 048
     Dates: start: 20170115
  27. PANTOPRAZOLE SODIUM [Concomitant]
     Active Substance: PANTOPRAZOLE SODIUM
     Indication: Gastritis
     Dosage: UNK
     Route: 048
     Dates: start: 202111, end: 20211115
  28. SODIUM CHLORIDE [Concomitant]
     Active Substance: SODIUM CHLORIDE
     Indication: Hypercalcaemia
     Dosage: UNK
     Route: 042
     Dates: start: 202109, end: 202109
  29. HYDROMORPHONE HYDROCHLORIDE [Concomitant]
     Active Substance: HYDROMORPHONE HYDROCHLORIDE
     Indication: Pain
     Dosage: 1.3 GRAM, AS NECESSARY
     Route: 048
     Dates: start: 202109, end: 202109
  30. HYDROMORPHONE HYDROCHLORIDE [Concomitant]
     Active Substance: HYDROMORPHONE HYDROCHLORIDE
     Dosage: 2 GRAM, BID
     Route: 048
     Dates: start: 202109, end: 202109
  31. ENOXAPARIN SODIUM [Concomitant]
     Active Substance: ENOXAPARIN SODIUM
     Dosage: 4000 INTERNATIONAL UNIT, QD
     Route: 058
     Dates: start: 202109, end: 202109
  32. LASIX [Concomitant]
     Active Substance: FUROSEMIDE
     Indication: Hypercalcaemia
     Dosage: UNK
     Route: 042
     Dates: start: 202109, end: 202109

REACTIONS (2)
  - Osteonecrosis of jaw [Recovered/Resolved]
  - Off label use [Unknown]

NARRATIVE: CASE EVENT DATE: 20201215
